FAERS Safety Report 11680207 (Version 2)
Quarter: 2015Q4

REPORT INFORMATION
  Report Type: Spontaneous
  Country: US (occurrence: US)
  Receive Date: 20151027
  Receipt Date: 20151104
  Transmission Date: 20160304
  Serious: No
  Sender: FDA-Public Use
  Company Number: US-ELI_LILLY_AND_COMPANY-US201002004210

PATIENT
  Sex: Female

DRUGS (5)
  1. FORTEO [Suspect]
     Active Substance: TERIPARATIDE
     Dosage: 20 UG, DAILY (1/D)
  2. ZOCOR [Concomitant]
     Active Substance: SIMVASTATIN
  3. FORTEO [Suspect]
     Active Substance: TERIPARATIDE
     Indication: OSTEOPOROSIS
     Dosage: 20 UG, DAILY (1/D)
     Dates: start: 20091220
  4. FORTEO [Suspect]
     Active Substance: TERIPARATIDE
     Dosage: 20 UG, DAILY (1/D)
  5. LEVEMIR [Concomitant]
     Active Substance: INSULIN DETEMIR
     Indication: DIABETES MELLITUS

REACTIONS (31)
  - Malaise [Not Recovered/Not Resolved]
  - Musculoskeletal discomfort [Unknown]
  - Injection site pruritus [Recovered/Resolved]
  - Muscle spasms [Not Recovered/Not Resolved]
  - Musculoskeletal pain [Unknown]
  - Injection site extravasation [Recovered/Resolved]
  - Rotator cuff syndrome [Unknown]
  - Arthralgia [Unknown]
  - Dizziness [Unknown]
  - Asthenia [Unknown]
  - Blood glucose fluctuation [Unknown]
  - Limb injury [Unknown]
  - Erythema [Recovered/Resolved]
  - Nausea [Unknown]
  - Fall [Recovering/Resolving]
  - Pruritus [Recovered/Resolved]
  - Bone disorder [Unknown]
  - Upper limb fracture [Unknown]
  - Pain in extremity [Unknown]
  - Somnolence [Unknown]
  - Skin injury [Recovered/Resolved]
  - Cellulitis [Recovered/Resolved]
  - Pain of skin [Unknown]
  - Abdominal discomfort [Unknown]
  - Pain [Unknown]
  - Wrong technique in product usage process [Unknown]
  - Scar [Not Recovered/Not Resolved]
  - Soft tissue injury [Unknown]
  - Foot fracture [Unknown]
  - Vomiting [Unknown]
  - Injection site bruising [Recovered/Resolved]
